FAERS Safety Report 7979015-2 (Version None)
Quarter: 2011Q4

REPORT INFORMATION
  Report Type: 
  Country: None (occurrence: None)
  Receive Date: 20111201
  Receipt Date: 20111118
  Transmission Date: 20120403
  Serious: No
  Sender: FDA-Public Use
  Company Number: 2011SP054462

PATIENT
  Age: 40 Year
  Sex: Female

DRUGS (2)
  1. SAPHRIS [Suspect]
     Indication: PSYCHOTIC DISORDER
     Dosage: SL
     Route: 060
  2. SAPHRIS [Suspect]
     Indication: DEPRESSION
     Dosage: SL
     Route: 060

REACTIONS (1)
  - THROAT TIGHTNESS [None]
